FAERS Safety Report 5719050-8 (Version None)
Quarter: 2008Q2

REPORT INFORMATION
  Report Type: 
  Country: None (occurrence: None)
  Receive Date: 20080423
  Receipt Date: 20080409
  Transmission Date: 20081010
  Serious: Yes (Other)
  Sender: FDA-Public Use
  Company Number: 2008-01290

PATIENT
  Sex: Male
  Weight: 75 kg

DRUGS (2)
  1. VELCADE [Suspect]
     Indication: MULTIPLE MYELOMA
     Dosage: 2.5 MG, INTRAVENOUS
     Route: 042
     Dates: start: 20080325, end: 20080404
  2. CYCLOPHOSPHAMIDE [Suspect]
     Indication: MULTIPLE MYELOMA
     Dosage: 1700 MG, INTRAVENOUS
     Route: 042
     Dates: start: 20080325, end: 20080404

REACTIONS (1)
  - TINNITUS [None]
